FAERS Safety Report 7506045-7 (Version None)
Quarter: 2011Q2

REPORT INFORMATION
  Report Type: 
  Country: None (occurrence: None)
  Receive Date: 20110526
  Receipt Date: 20110519
  Transmission Date: 20111010
  Serious: Yes (Death)
  Sender: FDA-Public Use
  Company Number: JP-ROCHE-767574

PATIENT
  Age: 76 Year
  Sex: Female
  Weight: 45 kg

DRUGS (20)
  1. LEUCOVORIN CALCIUM [Concomitant]
     Route: 041
     Dates: start: 20110111, end: 20110111
  2. FLUOROURACIL [Concomitant]
     Route: 041
     Dates: start: 20110111, end: 20110112
  3. EMEND [Concomitant]
     Route: 048
     Dates: start: 20110224, end: 20110224
  4. BUSCOPAN [Concomitant]
     Route: 042
     Dates: start: 20110226, end: 20110226
  5. OXALIPLATIN [Suspect]
     Indication: RECTAL CANCER RECURRENT
     Dosage: ROUTE: INTRAVENOUS DRIP
     Route: 041
     Dates: start: 20110111, end: 20110111
  6. OXALIPLATIN [Suspect]
     Route: 041
     Dates: start: 20110224, end: 20110224
  7. FLUOROURACIL [Concomitant]
     Route: 041
     Dates: start: 20110111, end: 20110111
  8. KYTRIL [Concomitant]
     Route: 048
     Dates: start: 20110225, end: 20110225
  9. NAUZELIN [Concomitant]
     Route: 048
     Dates: start: 20110225, end: 20110226
  10. OPSO [Concomitant]
     Dosage: DOSE FORM: PERORAL LIQUID PREPARATION
     Route: 048
     Dates: start: 20110224, end: 20110224
  11. OPSO [Concomitant]
     Route: 048
     Dates: start: 20110226, end: 20110226
  12. FENTANYL CITRATE [Concomitant]
     Dosage: DOSE FORM: TAPE
     Route: 062
     Dates: start: 20110226, end: 20110226
  13. OPSO [Concomitant]
     Dosage: DOSE FORM: PERORAL LIQUID PREPARATION
     Route: 048
     Dates: start: 20110225, end: 20110225
  14. FLURBIPROFEN [Concomitant]
     Dosage: DRUG: ROPION(FLURBIPROFEN AXETIL)
     Route: 042
     Dates: start: 20110226, end: 20110226
  15. XELODA [Suspect]
     Route: 048
     Dates: start: 20110226, end: 20110226
  16. MORPHINE SULFATE [Concomitant]
     Route: 048
     Dates: start: 20110224, end: 20110225
  17. DECADRON [Concomitant]
     Dosage: DRUG: DECADRON(DEXAMETHASONE SODIUM PHOSPHATE)
     Route: 042
     Dates: start: 20110224, end: 20110224
  18. DECADRON [Concomitant]
     Route: 042
     Dates: start: 20110225, end: 20110226
  19. XELODA [Suspect]
     Indication: RECTAL CANCER
     Route: 048
     Dates: start: 20110224, end: 20110225
  20. EMEND [Concomitant]
     Route: 048
     Dates: start: 20110225, end: 20110226

REACTIONS (7)
  - DECREASED APPETITE [None]
  - INSOMNIA [None]
  - PANCREATITIS ACUTE [None]
  - ILEUS [None]
  - SEPTIC SHOCK [None]
  - SEPSIS [None]
  - NEUROPATHY PERIPHERAL [None]
